FAERS Safety Report 5143967-9 (Version None)
Quarter: 2006Q4

REPORT INFORMATION
  Report Type: 
  Country: None (occurrence: None)
  Receive Date: 20061106
  Receipt Date: 20061027
  Transmission Date: 20070319
  Serious: Yes (Other)
  Sender: FDA-Public Use
  Company Number: ES-AVENTIS-200621244GDDC

PATIENT
  Age: 31 Year
  Sex: Female

DRUGS (2)
  1. RIFALDIN [Suspect]
     Indication: TUBERCULOSIS
     Dosage: DOSE: UNK
  2. CEMIDON [Suspect]
     Indication: TUBERCULOSIS
     Dosage: DOSE: UNK

REACTIONS (3)
  - ANGIONEUROTIC OEDEMA [None]
  - GENERALISED OEDEMA [None]
  - PYREXIA [None]
